FAERS Safety Report 15710495 (Version 1)
Quarter: 2018Q4

REPORT INFORMATION
  Report Type: Spontaneous
  Country: US (occurrence: US)
  Receive Date: 20181211
  Receipt Date: 20181211
  Transmission Date: 20190205
  Serious: Yes (Life-Threatening, Hospitalization)
  Sender: FDA-Public Use
  Company Number: US-MYLANLABS-2018M1089976

PATIENT
  Age: 8 Year
  Sex: Female

DRUGS (4)
  1. NITRIC OXIDE. [Suspect]
     Active Substance: NITRIC OXIDE
     Indication: HYPERCAPNIA
     Route: 065
  2. NITRIC OXIDE. [Suspect]
     Active Substance: NITRIC OXIDE
     Indication: RESPIRATORY DISORDER
  3. HEPARIN [Suspect]
     Active Substance: HEPARIN SODIUM
     Indication: ANTICOAGULANT THERAPY
     Dosage: STABLE HEPARIN REQUIREMENTS WITH A MAXIMUM DRIP RATE OF 20 U/KG/H
     Route: 050
  4. NITRIC OXIDE. [Suspect]
     Active Substance: NITRIC OXIDE
     Indication: HYPOXIA

REACTIONS (7)
  - Motor dysfunction [Recovered/Resolved]
  - Cerebral haemorrhage [Recovered/Resolved]
  - Intracranial pressure increased [Recovered/Resolved]
  - Catheter site haemorrhage [Recovered/Resolved]
  - Brain midline shift [Recovered/Resolved]
  - Intraventricular haemorrhage [Recovered/Resolved]
  - Cerebral haematoma [Recovered/Resolved]
